FAERS Safety Report 9445010 (Version 1)
Quarter: 2013Q3

REPORT INFORMATION
  Report Type: Spontaneous
  Country: US (occurrence: US)
  Receive Date: 20130731
  Receipt Date: 20130731
  Transmission Date: 20140515
  Serious: Yes (Hospitalization)
  Sender: FDA-Public Use
  Company Number: 2013PROUSA02963

PATIENT
  Age: 72 Year
  Sex: Male
  Weight: 141.5 kg

DRUGS (11)
  1. PROVENGE (SIPULEUCEL-T) SUSPENSION [Suspect]
     Indication: PROSTATE CANCER METASTATIC
     Dosage: SINGLE
     Route: 042
     Dates: start: 20130613, end: 20130613
  2. PIOGLITAZONE HYDROCHLORIDE (PIOGLITAZONE HYDROCHLORIDE) [Concomitant]
  3. CANDESARTAN CILEXETIL (CANDESARTAN CILEXETIL) [Concomitant]
  4. FENOFIBRATE (FENOFIBRATE) (FENOFIBRATE) [Concomitant]
  5. FOLIC ACID (FOLIC ACID) [Concomitant]
  6. HYDROCHLOROTHIAZIDE (HYDROCHLOROTHIAZIDE) [Concomitant]
  7. INSULIN GLARGINE (INSULIN GLARGINE) [Concomitant]
  8. LISINOPRIL (LISINOPRIL) [Concomitant]
  9. METFORMIN HCL (METFORMIN HYDROCHLORIDE) [Concomitant]
  10. LEVOTHYROXINE (LEVOTHYROXINE SODIUM) [Concomitant]
  11. SIMVASTATIN (SIMVASTATIN) [Concomitant]

REACTIONS (3)
  - Presyncope [None]
  - Bone pain [None]
  - Arthralgia [None]
